FAERS Safety Report 19942392 (Version 1)
Quarter: 2021Q4

REPORT INFORMATION
  Report Type: Spontaneous
  Country: US (occurrence: US)
  Receive Date: 20211011
  Receipt Date: 20211011
  Transmission Date: 20220303
  Serious: Yes (Life-Threatening, Hospitalization)
  Sender: FDA-Public Use
  Company Number: None

PATIENT
  Age: 20 Year
  Sex: Female
  Weight: 65.25 kg

DRUGS (2)
  1. OCTAGAM IMMUNE GLOBULIN (HUMAN) [Suspect]
     Active Substance: HUMAN IMMUNOGLOBULIN G
     Indication: Urticaria
     Route: 042
     Dates: start: 20211008, end: 20211009
  2. OCTAGAM IMMUNE GLOBULIN (HUMAN) [Suspect]
     Active Substance: HUMAN IMMUNOGLOBULIN G
     Indication: Urticaria
     Route: 042
     Dates: start: 20211008, end: 20211009

REACTIONS (7)
  - Headache [None]
  - Vomiting [None]
  - Epistaxis [None]
  - Musculoskeletal stiffness [None]
  - Pain [None]
  - Eye pain [None]
  - Meningitis aseptic [None]

NARRATIVE: CASE EVENT DATE: 20211010
